FAERS Safety Report 4368975-7 (Version None)
Quarter: 2004Q2

REPORT INFORMATION
  Report Type: 
  Country: None (occurrence: None)
  Receive Date: 20040525
  Receipt Date: 20040512
  Transmission Date: 20050107
  Serious: Yes (Hospitalization, Other)
  Sender: FDA-Public Use
  Company Number: FR-JNJFOC-20031201174

PATIENT
  Sex: Female

DRUGS (3)
  1. REMICADE [Suspect]
     Indication: CROHN'S DISEASE
     Dosage: INTRAVENOUS
     Route: 042
     Dates: start: 20021201, end: 20030401
  2. PREDNISONE [Suspect]
     Dosage: 5 MG, 1 IN 1 DAY , ORAL
     Route: 048
  3. AZATHIOPRINE [Suspect]
     Dosage: 50 MG , 1 IN 1 DAY, ORAL
     Route: 048

REACTIONS (4)
  - CAESAREAN SECTION [None]
  - CONGENITAL TERATOMA [None]
  - DRUG EXPOSURE DURING PREGNANCY [None]
  - POLYHYDRAMNIOS [None]
